FAERS Safety Report 6762062-6 (Version None)
Quarter: 2010Q2

REPORT INFORMATION
  Report Type: 
  Country: None (occurrence: None)
  Receive Date: 20100609
  Receipt Date: 20100604
  Transmission Date: 20101027
  Serious: Yes (Hospitalization)
  Sender: FDA-Public Use
  Company Number: SE-WYE-G06154810

PATIENT
  Sex: Female

DRUGS (14)
  1. TORISEL [Suspect]
     Indication: METASTATIC RENAL CELL CARCINOMA
     Dosage: DOSE UNKNOWN TOTALLY TEN DOSIS
     Dates: start: 20100219, end: 20100426
  2. ALVEDON [Concomitant]
  3. CIPROFLOXACIN [Concomitant]
  4. DIFLUCAN [Concomitant]
  5. LACTULOSE [Concomitant]
  6. TROMBYL [Concomitant]
  7. IMOVANE [Concomitant]
  8. ENALAPRIL [Concomitant]
  9. SELOKEN ZOC [Concomitant]
  10. IMDUR [Concomitant]
  11. SIMVASTATIN [Concomitant]
  12. LEVOTHYROXINE SODIUM [Concomitant]
  13. DEXOFEN [Concomitant]
  14. PREDNISOLONE [Concomitant]

REACTIONS (3)
  - ALVEOLITIS [None]
  - OXYGEN SATURATION DECREASED [None]
  - STAPHYLOCOCCAL SEPSIS [None]
